FAERS Safety Report 6238285-1 (Version None)
Quarter: 2009Q2

REPORT INFORMATION
  Report Type: 
  Country: None (occurrence: None)
  Receive Date: 20090617
  Receipt Date: 20090617
  Transmission Date: 20091009
  Serious: No
  Sender: FDA-Public Use
  Company Number: None

PATIENT
  Age: 27 Year
  Sex: Female
  Weight: 57.6068 kg

DRUGS (3)
  1. HUMULIN N [Suspect]
     Indication: TYPE 1 DIABETES MELLITUS
     Dosage: VARIABLE 2 TIMES/DAY SQ
     Route: 058
     Dates: start: 19921201, end: 20051101
  2. NOVOLOG [Concomitant]
  3. HUMULOG INSULIN [Concomitant]

REACTIONS (1)
  - INJECTION SITE ATROPHY [None]
